FAERS Safety Report 14856589 (Version 1)
Quarter: 2018Q2

REPORT INFORMATION
  Report Type: Spontaneous
  Country: US (occurrence: US)
  Receive Date: 20180507
  Receipt Date: 20180507
  Transmission Date: 20180711
  Serious: No
  Sender: FDA-Public Use
  Company Number: US-ROCHE-2081259

PATIENT
  Sex: Male

DRUGS (31)
  1. ESBRIET [Suspect]
     Active Substance: PIRFENIDONE
     Indication: IDIOPATHIC PULMONARY FIBROSIS
     Dosage: THREE 267 MG CAPSULES THRICE A DAY
     Route: 048
  2. FUROSEMIDE. [Concomitant]
     Active Substance: FUROSEMIDE
  3. RANEXA [Concomitant]
     Active Substance: RANOLAZINE
  4. VENTOLINE [Concomitant]
     Active Substance: ALBUTEROL
  5. FLUTICASONE PROPIONATE. [Concomitant]
     Active Substance: FLUTICASONE PROPIONATE
  6. GLIPIZIDE. [Concomitant]
     Active Substance: GLIPIZIDE
  7. ISOSORBID MONONITRAT [Concomitant]
  8. TRIAMCINOLONE ACETONIDE. [Concomitant]
     Active Substance: TRIAMCINOLONE ACETONIDE
  9. ATORVASTATIN CALCIUM. [Concomitant]
     Active Substance: ATORVASTATIN CALCIUM
  10. CICLOPIROX. [Concomitant]
     Active Substance: CICLOPIROX
  11. IPRATROPIUM BROMIDE. [Concomitant]
     Active Substance: IPRATROPIUM BROMIDE
  12. METOPROLOL TARTRATE. [Concomitant]
     Active Substance: METOPROLOL TARTRATE
  13. TRIAMTERENE AND HYDROCHLOROTHIAZIDE [Concomitant]
     Active Substance: HYDROCHLOROTHIAZIDE\TRIAMTERENE
  14. WARFARIN SODIUM. [Concomitant]
     Active Substance: WARFARIN SODIUM
  15. BENZONATATE. [Concomitant]
     Active Substance: BENZONATATE
  16. CEFDINIR. [Concomitant]
     Active Substance: CEFDINIR
  17. LASIX [Concomitant]
     Active Substance: FUROSEMIDE
  18. LISINOPRIL. [Concomitant]
     Active Substance: LISINOPRIL
  19. NAFTIN [Concomitant]
     Active Substance: NAFTIFINE HYDROCHLORIDE
  20. TIMOLOL MALEATE. [Concomitant]
     Active Substance: TIMOLOL MALEATE
  21. CEPHALEXIN. [Concomitant]
     Active Substance: CEPHALEXIN
  22. ESOMEPRAZOLE MAGNESIUM. [Concomitant]
     Active Substance: ESOMEPRAZOLE MAGNESIUM
  23. NITROSTAT [Concomitant]
     Active Substance: NITROGLYCERIN
  24. ZETIA [Concomitant]
     Active Substance: EZETIMIBE
  25. ENOXAPARIN SODIUM. [Concomitant]
     Active Substance: ENOXAPARIN SODIUM
  26. AMOXICILLIN. [Concomitant]
     Active Substance: AMOXICILLIN
  27. FLUZONE [Concomitant]
     Active Substance: INFLUENZA A VIRUS A/CALIFORNIA/7/2009 X-179A (H1N1) ANTIGEN (FORMALDEHYDE INACTIVATED)\INFLUENZA A VIRUS A/VICTORIA/210/2009 X-187 (H3N2) ANTIGEN (FORMALDEHYDE INACTIVATED)\INFLUENZA B VIRUS B/BRISBANE/60/2008 ANTIGEN (FORMALDEHYDE INACTIVATED)
  28. HUMALOG MIX75/25 [Concomitant]
     Active Substance: INSULIN LISPRO
  29. LYRICA [Concomitant]
     Active Substance: PREGABALIN
  30. NEXIUM [Concomitant]
     Active Substance: ESOMEPRAZOLE MAGNESIUM
  31. TRAMADOL HCL [Concomitant]
     Active Substance: TRAMADOL HYDROCHLORIDE

REACTIONS (1)
  - Decreased appetite [Recovered/Resolved]
